FAERS Safety Report 13832261 (Version 1)
Quarter: 2017Q3

REPORT INFORMATION
  Report Type: Spontaneous
  Country: US (occurrence: US)
  Receive Date: 20170803
  Receipt Date: 20170803
  Transmission Date: 20171127
  Serious: No
  Sender: FDA-Public Use
  Company Number: US-ROCHE-703622

PATIENT
  Age: 72 Year
  Sex: Female
  Weight: 49.9 kg

DRUGS (6)
  1. BONIVA [Suspect]
     Active Substance: IBANDRONATE SODIUM
     Indication: PRODUCT USED FOR UNKNOWN INDICATION
     Route: 048
  2. AMLODIN [Concomitant]
     Active Substance: AMLODIPINE BESYLATE
     Route: 065
  3. ALPHAGAN P [Concomitant]
     Active Substance: BRIMONIDINE TARTRATE
     Route: 065
  4. DIOVAN [Concomitant]
     Active Substance: VALSARTAN
     Route: 065
  5. PLAVIX [Concomitant]
     Active Substance: CLOPIDOGREL BISULFATE
     Route: 065
  6. XALATAN [Concomitant]
     Active Substance: LATANOPROST
     Dosage: AT BED TIME
     Route: 047

REACTIONS (2)
  - Headache [Unknown]
  - Abdominal pain upper [Unknown]

NARRATIVE: CASE EVENT DATE: 201004
